FAERS Safety Report 4357877-8 (Version None)
Quarter: 2004Q2

REPORT INFORMATION
  Report Type: 
  Country: None (occurrence: None)
  Receive Date: 20040514
  Receipt Date: 20040226
  Transmission Date: 20050107
  Serious: Yes (Other)
  Sender: FDA-Public Use
  Company Number: PHEH2004US02484

PATIENT
  Age: 49 Year
  Sex: Female
  Weight: 73 kg

DRUGS (12)
  1. ZOMETA [Suspect]
     Indication: BREAST CANCER METASTATIC
     Dosage: 4 MG, QMO
     Route: 042
     Dates: start: 20020601
  2. SEREVENT [Concomitant]
  3. FLOVENT [Concomitant]
  4. PAXIL [Concomitant]
  5. VALTREX [Concomitant]
  6. PREVACID [Concomitant]
  7. COMPAZINE [Concomitant]
  8. TAMOXIFEN CITRATE [Concomitant]
     Dates: start: 20020601
  9. LETROZOLE [Concomitant]
  10. TAXOTERE [Concomitant]
     Dates: start: 20020801
  11. GEMZAR [Concomitant]
     Dates: start: 20030101
  12. VINORELBINE TARTRATE [Concomitant]

REACTIONS (5)
  - BONE DISORDER [None]
  - FEELING ABNORMAL [None]
  - ORAL PAIN [None]
  - TOOTH DISORDER [None]
  - TOOTH INFECTION [None]
